FAERS Safety Report 9752536 (Version 2)
Quarter: 2014Q1

REPORT INFORMATION
  Report Type: Spontaneous
  Country: US (occurrence: US)
  Receive Date: 20131213
  Receipt Date: 20140103
  Transmission Date: 20141002
  Serious: Yes (Other)
  Sender: FDA-Public Use
  Company Number: US-JNJFOC-20131203732

PATIENT
  Sex: Female
  Weight: 79.38 kg

DRUGS (7)
  1. REMICADE [Suspect]
     Indication: PSORIATIC ARTHROPATHY
     Route: 042
     Dates: start: 20131125
  2. REMICADE [Suspect]
     Indication: PSORIATIC ARTHROPATHY
     Dosage: ON INFLIXIMAB FOR AT LEAST 5 YEARS
     Route: 042
     Dates: start: 200609
  3. ALLEGRA [Concomitant]
     Route: 065
  4. FLEXERIL [Concomitant]
     Route: 065
  5. FOLIC ACID [Concomitant]
     Route: 065
  6. IBUPROFEN [Concomitant]
     Route: 065
  7. MTX [Concomitant]
     Route: 065

REACTIONS (1)
  - Retinal vein occlusion [Recovered/Resolved with Sequelae]
